FAERS Safety Report 16912504 (Version 1)
Quarter: 2019Q4

REPORT INFORMATION
  Report Type: Spontaneous
  Country: US (occurrence: US)
  Receive Date: 20191014
  Receipt Date: 20191014
  Transmission Date: 20200122
  Serious: Yes (Death, Hospitalization)
  Sender: FDA-Public Use
  Company Number: US-TORRENT-00009316

PATIENT
  Age: 28 Year
  Sex: Male

DRUGS (2)
  1. BUPROPION. [Suspect]
     Active Substance: BUPROPION
     Indication: PRODUCT USED FOR UNKNOWN INDICATION
  2. DEPAKOTE [Concomitant]
     Active Substance: DIVALPROEX SODIUM
     Indication: PRODUCT USED FOR UNKNOWN INDICATION
     Dosage: UNKNOWN

REACTIONS (11)
  - Cardiac arrest [Fatal]
  - Status epilepticus [Not Recovered/Not Resolved]
  - Cardiotoxicity [Fatal]
  - Electrocardiogram QRS complex prolonged [Not Recovered/Not Resolved]
  - Hypotension [Not Recovered/Not Resolved]
  - Bradycardia [Not Recovered/Not Resolved]
  - Electrocardiogram QT prolonged [Not Recovered/Not Resolved]
  - Lethargy [Not Recovered/Not Resolved]
  - Overdose [Fatal]
  - Neurotoxicity [Fatal]
  - Completed suicide [Fatal]
